FAERS Safety Report 5201618-9 (Version None)
Quarter: 2006Q4

REPORT INFORMATION
  Report Type: 
  Country: None (occurrence: None)
  Receive Date: 20061006
  Receipt Date: 20060908
  Transmission Date: 20070319
  Serious: Yes (Other)
  Sender: FDA-Public Use
  Company Number: 200614756BWH

PATIENT
  Sex: Female

DRUGS (9)
  1. CIPRO [Suspect]
     Indication: ESCHERICHIA INFECTION
     Dosage: 500 MG, BID, ORAL
     Route: 048
  2. CIPRO [Suspect]
     Indication: PYELONEPHRITIS
     Dosage: 500 MG, BID, ORAL
     Route: 048
  3. LANTUS [Concomitant]
  4. HUMALOG [Concomitant]
  5. HYZAAR [Concomitant]
  6. PROVERA [Concomitant]
  7. ASPIRIN [Concomitant]
  8. ISOSORBIDE [Concomitant]
  9. CHOLESTEROL MEDS (NOS) [Concomitant]

REACTIONS (3)
  - FEELING HOT [None]
  - HYPERHIDROSIS [None]
  - URINARY BLADDER HAEMORRHAGE [None]
